FAERS Safety Report 5959578-9 (Version None)
Quarter: 2008Q4

REPORT INFORMATION
  Report Type: 
  Country: None (occurrence: None)
  Receive Date: 20081117
  Receipt Date: 20081107
  Transmission Date: 20090506
  Serious: Yes (Other)
  Sender: FDA-Public Use
  Company Number: A-CH2008-22621

PATIENT
  Age: 82 Year
  Sex: Male

DRUGS (4)
  1. TRACLEER [Suspect]
     Indication: SKIN ULCER
     Dosage: 62.5 MG, BID, ORAL; 125 MG, BID, ORAL
     Route: 048
  2. CORTISONE ACETATE [Concomitant]
  3. CYCLOPHOSPHAMIDE [Concomitant]
  4. ASPIRIN [Concomitant]

REACTIONS (1)
  - MYOCARDIAL INFARCTION [None]
